FAERS Safety Report 15299256 (Version 2)
Quarter: 2018Q3

REPORT INFORMATION
  Report Type: Report from Study
  Country: None (occurrence: PL)
  Receive Date: 20180821
  Receipt Date: 20180831
  Transmission Date: 20181010
  Serious: Yes (Hospitalization)
  Sender: FDA-Public Use
  Company Number: PL-ABBVIE-18S-129-2453100-00

PATIENT
  Age: 66 Year
  Sex: Male

DRUGS (2)
  1. SINEMET CR [Concomitant]
     Active Substance: CARBIDOPA\LEVODOPA
     Indication: PARKINSON^S DISEASE
     Dosage: 200/50
     Route: 048
  2. DUODOPA [Suspect]
     Active Substance: CARBIDOPA\LEVODOPA
     Indication: PARKINSON^S DISEASE
     Dosage: 3.5 ML/H
     Route: 050
     Dates: start: 201711

REACTIONS (2)
  - Chronic inflammatory demyelinating polyradiculoneuropathy [Recovering/Resolving]
  - Paresis [Recovering/Resolving]

NARRATIVE: CASE EVENT DATE: 201806
